FAERS Safety Report 11862680 (Version 1)
Quarter: 2015Q4

REPORT INFORMATION
  Report Type: Spontaneous
  Country: US (occurrence: None)
  Receive Date: 20151222
  Receipt Date: 20151222
  Transmission Date: 20160305
  Serious: Yes (Disabling, Other)
  Sender: FDA-Public Use
  Company Number: None

PATIENT
  Age: 49 Year
  Sex: Male
  Weight: 81.65 kg

DRUGS (10)
  1. ATENOLOL. [Concomitant]
     Active Substance: ATENOLOL
  2. ATORVASTATIN [Concomitant]
     Active Substance: ATORVASTATIN
  3. GABAPENTIN - COMMON BRAND NEURONTIN [Suspect]
     Active Substance: GABAPENTIN
     Indication: POST-TRAUMATIC STRESS DISORDER
     Dosage: 1 PILLL TWICE DAILY
     Route: 048
     Dates: start: 20150323, end: 20150511
  4. GABAPENTIN - COMMON BRAND NEURONTIN [Suspect]
     Active Substance: GABAPENTIN
     Indication: PANIC ATTACK
     Dosage: 1 PILLL TWICE DAILY
     Route: 048
     Dates: start: 20150323, end: 20150511
  5. GABAPENTIN - COMMON BRAND NEURONTIN [Suspect]
     Active Substance: GABAPENTIN
     Indication: DEPRESSION
     Dosage: 1 PILLL TWICE DAILY
     Route: 048
     Dates: start: 20150323, end: 20150511
  6. LANSOPRAZOLE. [Concomitant]
     Active Substance: LANSOPRAZOLE
  7. GABAPENTIN - COMMON BRAND NEURONTIN [Suspect]
     Active Substance: GABAPENTIN
     Indication: ANXIETY
     Dosage: 1 PILLL TWICE DAILY
     Route: 048
     Dates: start: 20150323, end: 20150511
  8. GABAPENTIN - COMMON BRAND NEURONTIN [Suspect]
     Active Substance: GABAPENTIN
     Indication: STRESS
     Dosage: 1 PILLL TWICE DAILY
     Route: 048
     Dates: start: 20150323, end: 20150511
  9. BETAMETHASONE VALERATE CREAM USP, 0.1% [Concomitant]
  10. D3 [Concomitant]
     Active Substance: 25-HYDROXYCHOLECALCIFEROL, 5-TRANS-

REACTIONS (9)
  - Rash [None]
  - Inner ear disorder [None]
  - Dizziness [None]
  - Urticaria [None]
  - Swelling [None]
  - Back pain [None]
  - Abdominal discomfort [None]
  - Balance disorder [None]
  - Mood swings [None]

NARRATIVE: CASE EVENT DATE: 20150330
